FAERS Safety Report 7648616-3 (Version None)
Quarter: 2011Q3

REPORT INFORMATION
  Report Type: 
  Country: None (occurrence: None)
  Receive Date: 20110801
  Receipt Date: 20110718
  Transmission Date: 20111222
  Serious: Yes (Other)
  Sender: FDA-Public Use
  Company Number: PHHY2011US67611

PATIENT
  Sex: Female

DRUGS (1)
  1. TASIGNA [Suspect]
     Indication: CHRONIC MYELOID LEUKAEMIA
     Dosage: UNK
     Dates: start: 20110512, end: 20110518

REACTIONS (5)
  - SKIN DISORDER [None]
  - HEADACHE [None]
  - PALPITATIONS [None]
  - PAIN IN EXTREMITY [None]
  - SUICIDAL IDEATION [None]
